FAERS Safety Report 19039924 (Version 1)
Quarter: 2021Q1

REPORT INFORMATION
  Report Type: Report from Study
  Country: US (occurrence: US)
  Receive Date: 20210323
  Receipt Date: 20210323
  Transmission Date: 20210420
  Serious: No
  Sender: FDA-Public Use
  Company Number: US-ACADIA PHARMACEUTICALS INC.-ACA-2021-PIM-000810

PATIENT
  Age: 72 Year
  Sex: Male

DRUGS (17)
  1. ALLEGRA ALLERGY [Concomitant]
     Active Substance: FEXOFENADINE HYDROCHLORIDE
     Dosage: 1 TABLET DAILY AS NEEDED
     Route: 048
  2. TOLTERODINE [Concomitant]
     Active Substance: TOLTERODINE
     Dosage: 1 CAPSULE DAILY
     Route: 048
  3. NUPLAZID [Suspect]
     Active Substance: PIMAVANSERIN TARTRATE
     Indication: HALLUCINATION
     Dosage: 34 MILLIGRAM, QD
     Route: 048
     Dates: start: 20210302, end: 20210304
  4. NUPLAZID [Suspect]
     Active Substance: PIMAVANSERIN TARTRATE
     Indication: DELUSION
  5. GLUCOSAMINE 1500 COMPLEX ADVANCED [Concomitant]
     Dosage: 1 CAPSULE DAILY
     Route: 048
  6. VITAMINS NOS [Concomitant]
     Active Substance: VITAMINS
     Dosage: 1 TABLET DAILY
     Route: 048
  7. PROBIOTICS NOS [Concomitant]
     Active Substance: PROBIOTICS NOS
     Dosage: DAILY AS NEEDED
     Route: 048
  8. NUPLAZID [Suspect]
     Active Substance: PIMAVANSERIN TARTRATE
     Indication: PARKINSON^S DISEASE PSYCHOSIS
     Dosage: 34 MILLIGRAM, QD
     Route: 048
     Dates: start: 20210117
  9. SEROQUEL [Concomitant]
     Active Substance: QUETIAPINE FUMARATE
     Dosage: 1 TABLET BEDTIME
     Route: 048
  10. SIMVASTATIN. [Concomitant]
     Active Substance: SIMVASTATIN
     Dosage: 1 TABLET DAILY
     Route: 048
  11. CARBIDOPA/LEVODOPA [Concomitant]
     Active Substance: CARBIDOPA\LEVODOPA
     Dosage: 1.T TABLETS 3 TIMES A DAY+0.5MG 2 TIMES AS NEEDED+1 TAB MIDDLE OF NIGHT AS NEEDED
  12. CETIRIZINE [Concomitant]
     Active Substance: CETIRIZINE HYDROCHLORIDE
     Dosage: 10 MG DAILY AS NEEDED
     Route: 048
  13. MIDODRINE [Concomitant]
     Active Substance: MIDODRINE
     Dosage: 1 TABLET 2 TIMES A DAY
     Route: 048
  14. POLYETHYLENE GLYCOL [MACROGOL] [Concomitant]
     Active Substance: POLYETHYLENE GLYCOLS
     Dosage: 17 G, PRN
     Route: 048
  15. SEROQUEL [Concomitant]
     Active Substance: QUETIAPINE FUMARATE
     Dosage: 0.5 TABLET FOR 1 WEEK BEDTIME
     Route: 048
  16. ASPIRIN (E.C.) [Concomitant]
     Active Substance: ASPIRIN
     Dosage: 81 MILLIGRAM, QD
     Route: 048
  17. VITAMIN D3 [Concomitant]
     Active Substance: CHOLECALCIFEROL
     Dosage: 1000 UNITS DAILY
     Route: 048

REACTIONS (5)
  - Disorientation [Unknown]
  - Hallucination [Not Recovered/Not Resolved]
  - Therapeutic response unexpected [Unknown]
  - Hallucination [Unknown]
  - Aggression [Not Recovered/Not Resolved]

NARRATIVE: CASE EVENT DATE: 20210225
